FAERS Safety Report 5782095-6 (Version None)
Quarter: 2008Q2

REPORT INFORMATION
  Report Type: 
  Country: None (occurrence: None)
  Receive Date: 20080623
  Receipt Date: 20080611
  Transmission Date: 20081010
  Serious: Yes (Other)
  Sender: FDA-Public Use
  Company Number: ZA-ROCHE-567533

PATIENT
  Sex: Male
  Weight: 78 kg

DRUGS (2)
  1. XELODA [Suspect]
     Dosage: PATIENT ON SECOND LINE TREATMENT WITH CAPECITABINE. USED FOR 14 WEEKS AT A TIME WITH 1 WEEK REST.
     Route: 048
     Dates: start: 20071231, end: 20080528
  2. VITAMINS NOS [Concomitant]

REACTIONS (2)
  - APHASIA [None]
  - LEUKOENCEPHALOPATHY [None]
